FAERS Safety Report 21500708 (Version 11)
Quarter: 2022Q4

REPORT INFORMATION
  Report Type: Spontaneous
  Country: NO (occurrence: NO)
  Receive Date: 20221025
  Receipt Date: 20221219
  Transmission Date: 20230113
  Serious: Yes (Other)
  Sender: FDA-Public Use
  Company Number: NO-ROCHE-3204463

PATIENT
  Age: 66 Year
  Sex: Female

DRUGS (40)
  1. POLATUZUMAB VEDOTIN [Suspect]
     Active Substance: POLATUZUMAB VEDOTIN
     Indication: Richter^s syndrome
     Route: 065
     Dates: start: 20220622, end: 20220816
  2. POLATUZUMAB VEDOTIN [Suspect]
     Active Substance: POLATUZUMAB VEDOTIN
     Route: 065
     Dates: start: 20220830, end: 20220913
  3. POLATUZUMAB VEDOTIN [Suspect]
     Active Substance: POLATUZUMAB VEDOTIN
     Route: 065
     Dates: start: 20220830, end: 20220913
  4. POLATUZUMAB VEDOTIN [Suspect]
     Active Substance: POLATUZUMAB VEDOTIN
     Route: 065
     Dates: start: 20220622, end: 20220816
  5. FLUDARABINE [Suspect]
     Active Substance: FLUDARABINE PHOSPHATE
     Indication: Richter^s syndrome
     Route: 065
     Dates: start: 20060701, end: 20061102
  6. FLUDARABINE [Suspect]
     Active Substance: FLUDARABINE PHOSPHATE
     Route: 065
     Dates: start: 20060701, end: 20061102
  7. MABTHERA [Suspect]
     Active Substance: RITUXIMAB
     Indication: Richter^s syndrome
     Route: 065
     Dates: start: 20060701, end: 20061102
  8. MABTHERA [Suspect]
     Active Substance: RITUXIMAB
     Route: 065
     Dates: start: 20150907, end: 20161128
  9. MABTHERA [Suspect]
     Active Substance: RITUXIMAB
     Route: 065
     Dates: start: 20190701, end: 20191001
  10. MABTHERA [Suspect]
     Active Substance: RITUXIMAB
     Route: 065
     Dates: start: 20190701, end: 20191001
  11. MABTHERA [Suspect]
     Active Substance: RITUXIMAB
     Route: 065
     Dates: start: 20220622, end: 20220816
  12. MABTHERA [Suspect]
     Active Substance: RITUXIMAB
     Route: 065
     Dates: start: 20220622, end: 20220816
  13. MABTHERA [Suspect]
     Active Substance: RITUXIMAB
     Dosage: PFT-22010
     Route: 065
     Dates: start: 20060701, end: 20061102
  14. MABTHERA [Suspect]
     Active Substance: RITUXIMAB
     Route: 065
     Dates: start: 20150907, end: 20161128
  15. MABTHERA [Suspect]
     Active Substance: RITUXIMAB
     Route: 065
     Dates: start: 20220101, end: 20220512
  16. OBINUTUZUMAB [Suspect]
     Active Substance: OBINUTUZUMAB
     Indication: Richter^s syndrome
     Route: 042
     Dates: start: 20220830
  17. OBINUTUZUMAB [Suspect]
     Active Substance: OBINUTUZUMAB
     Route: 042
     Dates: start: 20220830
  18. VINCRISTINE [Suspect]
     Active Substance: VINCRISTINE
     Indication: Richter^s syndrome
     Dosage: PDF-11210000
     Route: 065
     Dates: start: 20220101, end: 20220512
  19. VINCRISTINE [Suspect]
     Active Substance: VINCRISTINE
     Indication: Richter^s syndrome
     Route: 065
     Dates: start: 20220101, end: 20220512
  20. CYCLOPHOSPHAMIDE [Suspect]
     Active Substance: CYCLOPHOSPHAMIDE
     Indication: Richter^s syndrome
     Route: 065
     Dates: start: 20060701, end: 20061102
  21. CYCLOPHOSPHAMIDE [Suspect]
     Active Substance: CYCLOPHOSPHAMIDE
     Route: 065
     Dates: start: 20220101, end: 20220512
  22. IDELALISIB [Suspect]
     Active Substance: IDELALISIB
     Indication: Richter^s syndrome
     Route: 065
     Dates: start: 20150907, end: 20161128
  23. IDELALISIB [Suspect]
     Active Substance: IDELALISIB
     Route: 065
     Dates: start: 20150907, end: 20161128
  24. CHLORAMBUCIL [Suspect]
     Active Substance: CHLORAMBUCIL
     Indication: Richter^s syndrome
     Dosage: PDF-11213000
     Route: 065
     Dates: start: 20060404, end: 20060626
  25. CHLORAMBUCIL [Suspect]
     Active Substance: CHLORAMBUCIL
     Route: 065
     Dates: start: 20060404, end: 20060626
  26. BENDAMUSTINE [Suspect]
     Active Substance: BENDAMUSTINE
     Indication: Richter^s syndrome
     Route: 065
     Dates: start: 20220622, end: 20220816
  27. BENDAMUSTINE [Suspect]
     Active Substance: BENDAMUSTINE
     Route: 065
     Dates: start: 20220830, end: 20220913
  28. BENDAMUSTINE [Suspect]
     Active Substance: BENDAMUSTINE
     Route: 065
     Dates: start: 20220830, end: 20220913
  29. BENDAMUSTINE [Suspect]
     Active Substance: BENDAMUSTINE
     Dosage: PFT-22120
     Route: 065
     Dates: start: 20220622, end: 20220816
  30. OXALIPLATIN [Suspect]
     Active Substance: OXALIPLATIN
     Indication: Richter^s syndrome
     Route: 065
     Dates: start: 20220830
  31. DOXORUBICIN [Suspect]
     Active Substance: DOXORUBICIN
     Indication: Richter^s syndrome
     Route: 065
     Dates: start: 20220101, end: 20220512
  32. DOXORUBICIN [Suspect]
     Active Substance: DOXORUBICIN
     Dosage: PFT-22120
     Route: 065
     Dates: start: 20220101, end: 20220512
  33. VENETOCLAX [Suspect]
     Active Substance: VENETOCLAX
     Indication: Richter^s syndrome
     Route: 065
     Dates: start: 20190701, end: 20191001
  34. VENETOCLAX [Suspect]
     Active Substance: VENETOCLAX
     Route: 065
     Dates: start: 20190701, end: 20191001
  35. GEMCITABINE [Suspect]
     Active Substance: GEMCITABINE
     Indication: Richter^s syndrome
     Route: 065
     Dates: start: 20220830
  36. GEMCITABINE [Suspect]
     Active Substance: GEMCITABINE
     Dosage: PFT-22120
     Route: 065
     Dates: start: 20220830
  37. PREDNISOLONE [Suspect]
     Active Substance: PREDNISOLONE
     Indication: Richter^s syndrome
     Route: 065
     Dates: start: 20220101, end: 20220512
  38. PREDNISOLONE [Suspect]
     Active Substance: PREDNISOLONE
     Route: 065
     Dates: start: 20220101, end: 20220512
  39. IMBRUVICA [Suspect]
     Active Substance: IBRUTINIB
     Indication: Richter^s syndrome
     Route: 065
     Dates: start: 20161201, end: 20170401
  40. IMBRUVICA [Suspect]
     Active Substance: IBRUTINIB
     Route: 065
     Dates: start: 20161201, end: 20170401

REACTIONS (7)
  - Toxicity to various agents [Unknown]
  - COVID-19 [Recovered/Resolved]
  - Disease progression [Unknown]
  - Off label use [Unknown]
  - Blood disorder [Unknown]
  - Neutropenic infection [Unknown]
  - Blood lactate dehydrogenase increased [Unknown]

NARRATIVE: CASE EVENT DATE: 20221016
